FAERS Safety Report 14624610 (Version 1)
Quarter: 2018Q1

REPORT INFORMATION
  Report Type: Spontaneous
  Country: US (occurrence: US)
  Receive Date: 20180311
  Receipt Date: 20180311
  Transmission Date: 20180509
  Serious: Yes (Other)
  Sender: FDA-Public Use
  Company Number: None

PATIENT
  Age: 58 Year
  Sex: Female
  Weight: 105.75 kg

DRUGS (19)
  1. VICTOZA [Concomitant]
     Active Substance: LIRAGLUTIDE
  2. SAVEALLA [Concomitant]
  3. OMPRAZOLE [Suspect]
     Active Substance: OMEPRAZOLE
  4. STOOL SOFTENER (DOCUSATE) [Concomitant]
     Active Substance: DOCUSATE
  5. BELVIQ [Concomitant]
     Active Substance: LORCASERIN HYDROCHLORIDE
  6. ASPRIN [Concomitant]
     Active Substance: ASPIRIN
  7. FISH OIL [Concomitant]
     Active Substance: FISH OIL
  8. LOSARTAN. [Concomitant]
     Active Substance: LOSARTAN
  9. DANTROLENE SODIUM. [Concomitant]
     Active Substance: DANTROLENE SODIUM
  10. NOVOLOG [Concomitant]
     Active Substance: INSULIN ASPART
  11. MENTANX [Concomitant]
  12. MULTI VITAMIN [Concomitant]
     Active Substance: VITAMINS
  13. GABAPENTIN. [Concomitant]
     Active Substance: GABAPENTIN
  14. CALCIUM [Concomitant]
     Active Substance: CALCIUM
  15. TRINTELLIX [Suspect]
     Active Substance: VORTIOXETINE HYDROBROMIDE
     Indication: DEPRESSION
     Dosage: ?          QUANTITY:30 TABLET(S);?
     Route: 048
     Dates: start: 20180305, end: 20180309
  16. VITAMIN D [Concomitant]
     Active Substance: CHOLECALCIFEROL
  17. LEVEMIR [Concomitant]
     Active Substance: INSULIN DETEMIR
  18. METAFORMIN [Concomitant]
  19. NYCUNTA [Concomitant]

REACTIONS (2)
  - Pruritus generalised [None]
  - Therapy cessation [None]

NARRATIVE: CASE EVENT DATE: 20180309
